FAERS Safety Report 25052380 (Version 1)
Quarter: 2025Q1

REPORT INFORMATION
  Report Type: Spontaneous
  Country: CN (occurrence: CN)
  Receive Date: 20250307
  Receipt Date: 20250307
  Transmission Date: 20250408
  Serious: Yes (Hospitalization)
  Sender: MERCK SHARP & DOHME LLC
  Company Number: CN-009507513-2260744

PATIENT
  Age: 49 Year
  Sex: Female
  Weight: 66 kg

DRUGS (2)
  1. PEMBROLIZUMAB [Suspect]
     Active Substance: PEMBROLIZUMAB
     Indication: Malignant melanoma
     Dosage: 200 MG EVERY 21 DAYS
     Route: 041
     Dates: start: 20250206, end: 20250206
  2. SODIUM CHLORIDE [Concomitant]
     Active Substance: SODIUM CHLORIDE
     Route: 041
     Dates: start: 20250206, end: 20250206

REACTIONS (3)
  - Immune-mediated enterocolitis [Recovering/Resolving]
  - Cholestasis [Unknown]
  - Hepatic failure [Recovering/Resolving]

NARRATIVE: CASE EVENT DATE: 20250211
